FAERS Safety Report 11634776 (Version 1)
Quarter: 2015Q4

REPORT INFORMATION
  Report Type: Spontaneous
  Country: US (occurrence: US)
  Receive Date: 20151015
  Receipt Date: 20151015
  Transmission Date: 20160304
  Serious: No
  Sender: FDA-Public Use
  Company Number: US-INDIVIOR-RB-075239-2015

PATIENT
  Sex: Female

DRUGS (1)
  1. SUBOXONE [Suspect]
     Active Substance: BUPRENORPHINE HYDROCHLORIDE\NALOXONE HYDROCHLORIDE
     Indication: DRUG DEPENDENCE
     Dosage: 2 MG, DAILY
     Route: 060
     Dates: start: 201411

REACTIONS (2)
  - Tooth fracture [Recovered/Resolved]
  - Product preparation error [Not Recovered/Not Resolved]

NARRATIVE: CASE EVENT DATE: 201411
